FAERS Safety Report 15041964 (Version 5)
Quarter: 2018Q3

REPORT INFORMATION
  Report Type: Spontaneous
  Country: US (occurrence: US)
  Receive Date: 20180621
  Receipt Date: 20180704
  Transmission Date: 20181010
  Serious: No
  Sender: FDA-Public Use
  Company Number: US-BIOGEN-2018BI00594836

PATIENT
  Age: 64 Year
  Sex: Male

DRUGS (1)
  1. TYSABRI [Suspect]
     Active Substance: NATALIZUMAB
     Indication: MULTIPLE SCLEROSIS
     Route: 065
     Dates: start: 20140114, end: 20171017

REACTIONS (12)
  - Musculoskeletal disorder [Unknown]
  - Memory impairment [Unknown]
  - Speech disorder [Unknown]
  - General physical health deterioration [Unknown]
  - Hypoaesthesia [Unknown]
  - Malaise [Unknown]
  - Peripheral swelling [Unknown]
  - Pain [Unknown]
  - Neuropathy peripheral [Unknown]
  - Mobility decreased [Unknown]
  - Gait inability [Unknown]
  - Burning sensation [Unknown]

NARRATIVE: CASE EVENT DATE: 20180501
